FAERS Safety Report 5320952-5 (Version None)
Quarter: 2007Q2

REPORT INFORMATION
  Report Type: 
  Country: None (occurrence: None)
  Receive Date: 20070504
  Receipt Date: 20070420
  Transmission Date: 20071010
  Serious: Yes (Other)
  Sender: FDA-Public Use
  Company Number: 2007AD000044

PATIENT
  Sex: Female

DRUGS (1)
  1. KEFLEX [Suspect]
     Indication: DRUG USE FOR UNKNOWN INDICATION
     Dates: start: 20070401

REACTIONS (3)
  - DRUG HYPERSENSITIVITY [None]
  - LIP OEDEMA [None]
  - PHARYNGEAL OEDEMA [None]
